FAERS Safety Report 5146201-9 (Version None)
Quarter: 2006Q4

REPORT INFORMATION
  Report Type: 
  Country: None (occurrence: None)
  Receive Date: 20061106
  Receipt Date: 20061106
  Transmission Date: 20070319
  Serious: Yes (Other)
  Sender: FDA-Public Use
  Company Number: None

PATIENT
  Age: 45 Year
  Sex: Female
  Weight: 108.8633 kg

DRUGS (1)
  1. METRONIDAZOLE [Suspect]
     Indication: DIVERTICULITIS
     Dosage: 1 500MG TABLET 3X A DAY PO
     Route: 048
     Dates: start: 20061022, end: 20061103

REACTIONS (3)
  - RASH PRURITIC [None]
  - STOMACH DISCOMFORT [None]
  - URTICARIA [None]
